FAERS Safety Report 4541742-7 (Version None)
Quarter: 2004Q4

REPORT INFORMATION
  Report Type: 
  Country: None (occurrence: None)
  Receive Date: 20041227
  Receipt Date: 20041221
  Transmission Date: 20050328
  Serious: Yes (Death)
  Sender: FDA-Public Use
  Company Number: 211289

PATIENT
  Age: 75 Year
  Sex: Male

DRUGS (1)
  1. AVASTIN [Suspect]
     Dosage: INTRAVENOUS
     Route: 042

REACTIONS (3)
  - GANGRENE [None]
  - PROCEDURAL SITE REACTION [None]
  - SEPTIC SHOCK [None]
